FAERS Safety Report 15880514 (Version 1)
Quarter: 2019Q1

REPORT INFORMATION
  Report Type: Spontaneous
  Country: US (occurrence: US)
  Receive Date: 20190128
  Receipt Date: 20190128
  Transmission Date: 20190417
  Serious: Yes (Other)
  Sender: FDA-Public Use
  Company Number: None

PATIENT

DRUGS (1)
  1. H-SCARS FORMULA HOMEOPATHIC 039 [Suspect]
     Active Substance: HOMEOPATHICS
     Indication: KELOID SCAR
     Route: 061

REACTIONS (2)
  - Drug ineffective [None]
  - Product complaint [None]

NARRATIVE: CASE EVENT DATE: 20190128
